FAERS Safety Report 9225754 (Version 1)
Quarter: 2013Q1

REPORT INFORMATION
  Report Type: Spontaneous
  Country: US (occurrence: None)
  Receive Date: 20120912
  Receipt Date: 20120912
  Transmission Date: 20140127
  Serious: No
  Sender: FDA-Public Use
  Company Number: 2012SP036466

PATIENT
  Age: 54 Year
  Sex: Male

DRUGS (4)
  1. VICTRELIS 200 MG [Suspect]
     Indication: HEPATITIS C
     Dates: start: 20120416
  2. PEGINTRON [Suspect]
     Dosage: 150 MCG;QW
     Dates: start: 20120328
  3. RIBASPHERE [Suspect]
  4. PROCRIT [Concomitant]

REACTIONS (1)
  - Upper respiratory tract infection [None]
